FAERS Safety Report 4436991-2 (Version None)
Quarter: 2004Q3

REPORT INFORMATION
  Report Type: 
  Country: None (occurrence: None)
  Receive Date: 20040830
  Receipt Date: 20040505
  Transmission Date: 20050211
  Serious: No
  Sender: FDA-Public Use
  Company Number: US-GLAXOSMITHKLINE-A0509664A

PATIENT
  Sex: Male

DRUGS (2)
  1. BECONASE [Suspect]
     Route: 045
  2. UNKNOWN [Concomitant]

REACTIONS (1)
  - DRUG INEFFECTIVE [None]
